FAERS Safety Report 8549330-2 (Version None)
Quarter: 2012Q2

REPORT INFORMATION
  Report Type: 
  Country: None (occurrence: None)
  Receive Date: 20120416
  Receipt Date: 20110624
  Transmission Date: 20120825
  Serious: Yes (Other)
  Sender: FDA-Public Use
  Company Number: PHHY2011US57221

PATIENT
  Sex: Female

DRUGS (13)
  1. RAMIPRIL [Suspect]
  2. CYMBALTA [Concomitant]
  3. VALTURNA [Suspect]
     Dosage: 1 DF, PER DAY
  4. CLONIDINE [Suspect]
     Dosage: 3 DF, PER DAY
  5. SPIRONOLACTONE [Suspect]
     Dosage: 25 MG
  6. NORVASC [Suspect]
  7. ASPIRIN [Concomitant]
  8. LANTUS [Concomitant]
  9. HYDROCHLOROTHIAZIDE [Concomitant]
  10. DIOVAN [Suspect]
  11. METFFORMIN HYDROCHLORIDE [Concomitant]
  12. LOPRESSOR [Concomitant]
  13. GLIMEPIRIDE [Concomitant]

REACTIONS (15)
  - BLOOD PRESSURE INCREASED [None]
  - DRUG INEFFECTIVE [None]
  - SOMNOLENCE [None]
  - DIARRHOEA [None]
  - ACTIVITIES OF DAILY LIVING IMPAIRED [None]
  - DYSPNOEA [None]
  - RHINORRHOEA [None]
  - FATIGUE [None]
  - ABDOMINAL PAIN UPPER [None]
  - COUGH [None]
  - HEADACHE [None]
  - DIZZINESS [None]
  - MALAISE [None]
  - OROPHARYNGEAL PAIN [None]
  - DRY THROAT [None]
